FAERS Safety Report 12120841 (Version 1)
Quarter: 2016Q1

REPORT INFORMATION
  Report Type: Spontaneous
  Country: US (occurrence: US)
  Receive Date: 20160226
  Receipt Date: 20160226
  Transmission Date: 20160526
  Serious: No
  Sender: FDA-Public Use
  Company Number: US-ALLERGAN-1308162US

PATIENT
  Age: 42 Year
  Sex: Female

DRUGS (2)
  1. MIGRAINE MEDICATION NOS [Concomitant]
     Indication: MIGRAINE
     Dosage: UNK, PRN
     Route: 048
  2. REFRESH OPTIVE [Suspect]
     Active Substance: CARBOXYMETHYLCELLULOSE SODIUM\GLYCERIN
     Indication: OCULAR HYPERAEMIA
     Dosage: 2 GTT, UNK
     Route: 047
     Dates: start: 20130501

REACTIONS (1)
  - Drug ineffective [Unknown]
